FAERS Safety Report 13169983 (Version 1)
Quarter: 2017Q1

REPORT INFORMATION
  Report Type: Spontaneous
  Country: US (occurrence: US)
  Receive Date: 20170131
  Receipt Date: 20170131
  Transmission Date: 20170428
  Serious: No
  Sender: FDA-Public Use
  Company Number: US-ABBVIE-16K-163-1535820-00

PATIENT

DRUGS (4)
  1. VICTOZA [Concomitant]
     Active Substance: LIRAGLUTIDE
     Indication: PRODUCT USED FOR UNKNOWN INDICATION
  2. HUMIRA [Suspect]
     Active Substance: ADALIMUMAB
     Indication: HIDRADENITIS
     Dosage: INITIAL DOSE
     Route: 058
     Dates: start: 201510, end: 201510
  3. HUMIRA [Suspect]
     Active Substance: ADALIMUMAB
     Dosage: BOOSTER DOSE
     Route: 058
     Dates: start: 201510, end: 201510
  4. HUMIRA [Suspect]
     Active Substance: ADALIMUMAB
     Route: 058
     Dates: start: 201602

REACTIONS (4)
  - Weight decreased [Unknown]
  - Hidradenitis [Not Recovered/Not Resolved]
  - Fear of injection [Unknown]
  - Drug ineffective [Unknown]
